FAERS Safety Report 10398503 (Version 1)
Quarter: 2014Q3

REPORT INFORMATION
  Report Type: Spontaneous
  Country: US (occurrence: US)
  Receive Date: 20140821
  Receipt Date: 20140821
  Transmission Date: 20150326
  Serious: No
  Sender: FDA-Public Use
  Company Number: US-ZOGENIX, INC.-2014ZX000175

PATIENT
  Age: 65 Year
  Sex: Male
  Weight: 99.88 kg

DRUGS (3)
  1. ZOHYDRO [Suspect]
     Active Substance: HYDROCODONE BITARTRATE
     Indication: MUSCULOSKELETAL PAIN
     Route: 048
     Dates: start: 201405
  2. ZOHYDRO [Suspect]
     Active Substance: HYDROCODONE BITARTRATE
     Indication: NECK PAIN
  3. NEURONTIN [Concomitant]
     Active Substance: GABAPENTIN
     Indication: PAIN

REACTIONS (1)
  - Therapeutic response decreased [Unknown]

NARRATIVE: CASE EVENT DATE: 201405
